FAERS Safety Report 25180471 (Version 1)
Quarter: 2025Q2

REPORT INFORMATION
  Report Type: Spontaneous
  Country: CN (occurrence: CN)
  Receive Date: 20250409
  Receipt Date: 20250409
  Transmission Date: 20250716
  Serious: Yes (Hospitalization)
  Sender: CALLIDITAS THERAPEUTICS
  Company Number: CN-EVEREST-20250300108

PATIENT
  Sex: Female
  Weight: 71 kg

DRUGS (5)
  1. BUDESONIDE [Suspect]
     Active Substance: BUDESONIDE
     Indication: IgA nephropathy
     Dosage: 16 MILLIGRAM, QD
     Route: 048
     Dates: start: 20250301, end: 20250326
  2. LOSARTAN POTASSIUM [Suspect]
     Active Substance: LOSARTAN POTASSIUM
     Indication: IgA nephropathy
     Dosage: 50 MILLIGRAM, QD
     Route: 048
     Dates: start: 20250301, end: 20250328
  3. HYDROXYCHLOROQUINE SULFATE [Suspect]
     Active Substance: HYDROXYCHLOROQUINE SULFATE
     Indication: IgA nephropathy
     Dosage: 0.2 GRAM, BID
     Route: 048
     Dates: start: 20250309, end: 20250326
  4. Calcium carbonate and vitamin d3 tablets (i) [Concomitant]
     Indication: Adjuvant therapy
     Dosage: 1 DOSAGE FORM, QD
     Route: 048
     Dates: start: 20250301, end: 20250326
  5. PREDNISONE ACETATE [Concomitant]
     Active Substance: PREDNISONE ACETATE
     Indication: IgA nephropathy
     Dosage: 17.5 MILLIGRAM, QD
     Route: 048
     Dates: start: 20250301, end: 20250326

REACTIONS (1)
  - Rash pruritic [Recovering/Resolving]

NARRATIVE: CASE EVENT DATE: 20250320
